FAERS Safety Report 12811014 (Version 2)
Quarter: 2018Q3

REPORT INFORMATION
  Report Type: Spontaneous
  Country: FR (occurrence: FR)
  Receive Date: 20161005
  Receipt Date: 20180829
  Transmission Date: 20181010
  Serious: Yes (Life-Threatening, Other)
  Sender: FDA-Public Use
  Company Number: FR-PFIZER INC-2016460167

PATIENT
  Age: 1 Year
  Sex: Male

DRUGS (2)
  1. GARDENAL [Concomitant]
     Active Substance: PHENOBARBITAL
     Dosage: UNK
  2. PRODILANTIN [Suspect]
     Active Substance: FOSPHENYTOIN SODIUM
     Indication: SEIZURE
     Dosage: 15 MG/KG PE, UNK

REACTIONS (6)
  - Cardiac arrest [Unknown]
  - Cardiac failure [Unknown]
  - Bradycardia [Unknown]
  - Product preparation error [Unknown]
  - Drug administered to patient of inappropriate age [Unknown]
  - Anticonvulsant drug level above therapeutic [Unknown]
